FAERS Safety Report 12439429 (Version 1)
Quarter: 2016Q2

REPORT INFORMATION
  Report Type: Spontaneous
  Country: US (occurrence: US)
  Receive Date: 20160606
  Receipt Date: 20160606
  Transmission Date: 20160815
  Serious: No
  Sender: FDA-Public Use
  Company Number: US-TEVA-664466USA

PATIENT
  Sex: Female

DRUGS (11)
  1. GINGER ROOT [Concomitant]
     Active Substance: GINGER
  2. ZETIA [Concomitant]
     Active Substance: EZETIMIBE
  3. NEURONTIN [Concomitant]
     Active Substance: GABAPENTIN
  4. LESCOL [Concomitant]
     Active Substance: FLUVASTATIN SODIUM
  5. VITAMIN D3 [Concomitant]
     Active Substance: CHOLECALCIFEROL
  6. COPAXONE [Suspect]
     Active Substance: GLATIRAMER ACETATE
     Indication: MULTIPLE SCLEROSIS
     Route: 058
  7. METFORMIN [Concomitant]
     Active Substance: METFORMIN HYDROCHLORIDE
  8. CAPSICUM [Concomitant]
     Active Substance: CAPSICUM
  9. CALCIUM [Concomitant]
     Active Substance: CALCIUM
  10. DIOVAN [Concomitant]
     Active Substance: VALSARTAN
  11. PROVIGIL [Concomitant]
     Active Substance: MODAFINIL

REACTIONS (1)
  - Chills [Unknown]

NARRATIVE: CASE EVENT DATE: 2016
